FAERS Safety Report 20422878 (Version 1)
Quarter: 2022Q1

REPORT INFORMATION
  Report Type: Spontaneous
  Country: US (occurrence: US)
  Receive Date: 20220203
  Receipt Date: 20220203
  Transmission Date: 20220423
  Serious: Yes (Hospitalization)
  Sender: FDA-Public Use
  Company Number: US-MYLANLABS-2022M1009962

PATIENT
  Age: 65 Year
  Sex: Male

DRUGS (2)
  1. HEPARIN [Suspect]
     Active Substance: HEPARIN SODIUM
     Indication: Anticoagulant therapy
     Dosage: UNK
     Route: 065
  2. CEFAZOLIN [Suspect]
     Active Substance: CEFAZOLIN
     Indication: Infection prophylaxis
     Dosage: 2 GRAM, Q4H, INTRAOPERATIVELY
     Route: 065

REACTIONS (2)
  - Thrombocytopenia [Recovered/Resolved]
  - Coagulopathy [Recovered/Resolved]
